FAERS Safety Report 12967786 (Version 2)
Quarter: 2016Q4

REPORT INFORMATION
  Report Type: Spontaneous
  Country: US (occurrence: US)
  Receive Date: 20161123
  Receipt Date: 20161222
  Transmission Date: 20170207
  Serious: No
  Sender: FDA-Public Use
  Company Number: US-PFIZER INC-2016531626

PATIENT
  Age: 53 Year
  Sex: Female

DRUGS (13)
  1. TIZANIDINE. [Concomitant]
     Active Substance: TIZANIDINE
  2. TRAMADOL. [Concomitant]
     Active Substance: TRAMADOL
  3. PERCOCET [Concomitant]
     Active Substance: ACETAMINOPHEN\OXYCODONE HYDROCHLORIDE
  4. NORCO [Concomitant]
     Active Substance: ACETAMINOPHEN\HYDROCODONE BITARTRATE
  5. XARELTO [Concomitant]
     Active Substance: RIVAROXABAN
  6. ESZOPICLONE. [Concomitant]
     Active Substance: ESZOPICLONE
  7. FLEXERIL [Concomitant]
     Active Substance: CYCLOBENZAPRINE HYDROCHLORIDE
  8. XELJANZ XR [Suspect]
     Active Substance: TOFACITINIB CITRATE
     Dosage: 11 MG, 1X/DAY
     Route: 048
     Dates: start: 20161104
  9. PREDNISONE. [Concomitant]
     Active Substance: PREDNISONE
  10. LOVENOX [Concomitant]
     Active Substance: ENOXAPARIN SODIUM
  11. XELJANZ XR [Suspect]
     Active Substance: TOFACITINIB CITRATE
     Indication: RHEUMATOID ARTHRITIS
     Dosage: 11 MG, 1X/DAY
     Route: 048
     Dates: start: 201609, end: 20161004
  12. XELJANZ XR [Suspect]
     Active Substance: TOFACITINIB CITRATE
     Dosage: 11 MG, DAILY
  13. LASIX [Concomitant]
     Active Substance: FUROSEMIDE

REACTIONS (4)
  - Back pain [Unknown]
  - Pain in extremity [Unknown]
  - Coccydynia [Unknown]
  - Myalgia [Unknown]

NARRATIVE: CASE EVENT DATE: 20161004
